FAERS Safety Report 10059888 (Version 3)
Quarter: 2014Q2

REPORT INFORMATION
  Report Type: Spontaneous
  Country: US (occurrence: US)
  Receive Date: 20140404
  Receipt Date: 20140630
  Transmission Date: 20141212
  Serious: Yes (Hospitalization)
  Sender: FDA-Public Use
  Company Number: US-PFIZER INC-2014094599

PATIENT
  Sex: Female

DRUGS (2)
  1. TIKOSYN [Suspect]
     Indication: ATRIAL FIBRILLATION
     Dosage: 500 UG, UNK
  2. TIKOSYN [Suspect]
     Indication: ATRIAL FLUTTER
     Dosage: 250 UG, UNK

REACTIONS (2)
  - Rhinitis [Recovered/Resolved]
  - Nasal oedema [Recovered/Resolved]
